FAERS Safety Report 7187285-6 (Version None)
Quarter: 2010Q4

REPORT INFORMATION
  Report Type: 
  Country: None (occurrence: None)
  Receive Date: 20101222
  Receipt Date: 20101217
  Transmission Date: 20110411
  Serious: Yes (Other)
  Sender: FDA-Public Use
  Company Number: AU-AMGEN-AUSCT2010008023

PATIENT
  Sex: Female

DRUGS (7)
  1. ROMIPLOSTIM [Suspect]
     Indication: IDIOPATHIC THROMBOCYTOPENIC PURPURA
     Dosage: 3 A?G, QWK
     Route: 058
     Dates: start: 20101014
  2. PREDNISONE [Concomitant]
     Dosage: UNK
     Route: 048
     Dates: start: 20100805
  3. PANADOL                            /00020001/ [Concomitant]
     Dosage: 1000 MG, PRN
     Dates: start: 20000101
  4. NEXIUM [Concomitant]
     Dosage: 40 MG, QD
     Route: 048
     Dates: start: 20100101
  5. TRAVACALM [Concomitant]
     Dosage: UNK UNK, PRN
     Route: 048
     Dates: start: 20101112, end: 20101114
  6. BENADRYL CHESTY FORTE [Concomitant]
     Dosage: 15 ML, PRN
     Route: 048
     Dates: start: 20101120, end: 20101126
  7. LAMISIL                            /00992601/ [Concomitant]
     Dosage: UNK UNK, PRN
     Route: 061
     Dates: start: 20101127

REACTIONS (1)
  - LICHENOID KERATOSIS [None]
